FAERS Safety Report 8824923 (Version 1)
Quarter: 2012Q4

REPORT INFORMATION
  Report Type: 
  Country: US (occurrence: US)
  Receive Date: 20121004
  Receipt Date: 20121004
  Transmission Date: 20130627
  Serious: Yes (Death)
  Sender: FDA-Public Use
  Company Number: US-ROCHE-1134494

PATIENT
  Sex: Female

DRUGS (11)
  1. RITUXAN [Suspect]
     Indication: THROMBOTIC MICROANGIOPATHY
     Route: 065
  2. RITUXAN [Suspect]
     Indication: THROMBOCYTOPENIA
     Route: 065
     Dates: start: 20030328
  3. RITUXAN [Suspect]
     Indication: OFF LABEL USE
     Route: 065
     Dates: start: 20030304
  4. RITUXAN [Suspect]
     Route: 065
     Dates: start: 20030411
  5. RITUXAN [Suspect]
     Route: 065
     Dates: start: 20030418
  6. RITUXAN [Suspect]
     Route: 065
     Dates: start: 20030425
  7. RITUXAN [Suspect]
     Route: 065
     Dates: start: 20030502
  8. RITUXAN [Suspect]
     Route: 065
     Dates: start: 20030617
  9. RITUXAN [Suspect]
     Route: 065
     Dates: start: 20030624
  10. RITUXAN [Suspect]
     Route: 065
     Dates: start: 20030701
  11. RITUXAN [Suspect]
     Route: 065
     Dates: start: 20030708

REACTIONS (1)
  - Death [Fatal]
